FAERS Safety Report 7959480-7 (Version None)
Quarter: 2011Q4

REPORT INFORMATION
  Report Type: 
  Country: None (occurrence: None)
  Receive Date: 20111206
  Receipt Date: 20111201
  Transmission Date: 20120403
  Serious: No
  Sender: FDA-Public Use
  Company Number: US-PFIZER INC-2011293893

PATIENT
  Age: 80 Year
  Sex: Male

DRUGS (2)
  1. IBUPROFEN (ADVIL) [Suspect]
     Dosage: 800 MG, UNK
  2. IBUPROFEN (ADVIL) [Suspect]
     Indication: OSTEOARTHRITIS
     Dosage: 600 MG, UNK
     Route: 065

REACTIONS (2)
  - DYSPEPSIA [None]
  - INCORRECT DOSE ADMINISTERED [None]
